FAERS Safety Report 8956559 (Version 2)
Quarter: 2012Q4

REPORT INFORMATION
  Report Type: 
  Country: US (occurrence: US)
  Receive Date: 20121210
  Receipt Date: 20121214
  Transmission Date: 20130627
  Serious: Yes (Hospitalization, Other)
  Sender: FDA-Public Use
  Company Number: US-PFIZER INC-2012306790

PATIENT
  Age: 59 Year
  Sex: Male
  Weight: 83 kg

DRUGS (8)
  1. PROTONIX [Suspect]
     Indication: STOMACH BURNING SENSATION OF
     Dosage: 40 mg, 2x/day
     Route: 048
  2. PROTONIX [Suspect]
     Indication: STOMACH ULCER
  3. PLAVIX [Concomitant]
     Dosage: 75 mg, 1x/day
  4. LOPRESSOR [Concomitant]
     Dosage: 50 mg, 2x/day
  5. LIPITOR [Concomitant]
     Indication: HIGH CHOLESTEROL
     Dosage: 40 mg, UNK
  6. INSULIN [Concomitant]
     Indication: DIABETES
     Dosage: UNK
  7. LASIX [Concomitant]
     Dosage: 80 mg, 1x/day
  8. COZAAR [Concomitant]
     Dosage: 50 mg, 1x/day

REACTIONS (2)
  - Dysuria [Not Recovered/Not Resolved]
  - Coma [Recovered/Resolved]
